FAERS Safety Report 5627964-2 (Version None)
Quarter: 2008Q1

REPORT INFORMATION
  Report Type: 
  Country: None (occurrence: None)
  Receive Date: 20080215
  Receipt Date: 20080207
  Transmission Date: 20080703
  Serious: Yes (Life-Threatening)
  Sender: FDA-Public Use
  Company Number: GB-TEVA-167342ISR

PATIENT
  Sex: Female

DRUGS (2)
  1. LOPERAMIDE HCL [Suspect]
     Indication: DEPRESSION
     Route: 048
     Dates: start: 20070927, end: 20080115
  2. PROPRANOLOL [Concomitant]
     Indication: DEPRESSION
     Route: 048
     Dates: start: 20071212

REACTIONS (2)
  - DEPRESSION [None]
  - SUICIDAL IDEATION [None]
